FAERS Safety Report 11088338 (Version 1)
Quarter: 2015Q2

REPORT INFORMATION
  Report Type: Spontaneous
  Country: US (occurrence: US)
  Receive Date: 20150504
  Receipt Date: 20150504
  Transmission Date: 20150821
  Serious: No
  Sender: FDA-Public Use
  Company Number: US-009507513-1505USA000488

PATIENT
  Sex: Female
  Weight: 73.92 kg

DRUGS (1)
  1. NEXPLANON [Suspect]
     Active Substance: ETONOGESTREL
     Indication: CONTRACEPTION
     Dosage: 68 MG ONE ROD INSERTED EVERY 3 YEARS
     Route: 059
     Dates: start: 20140505, end: 20150430

REACTIONS (2)
  - Pain in extremity [Recovering/Resolving]
  - Device breakage [Unknown]
